FAERS Safety Report 4277195-6 (Version None)
Quarter: 2004Q1

REPORT INFORMATION
  Report Type: 
  Country: None (occurrence: None)
  Receive Date: 20040120
  Receipt Date: 19980711
  Transmission Date: 20041129
  Serious: Yes (Hospitalization)
  Sender: FDA-Public Use
  Company Number: 7171

PATIENT
  Age: 57 Year
  Sex: Female

DRUGS (3)
  1. METHOTREXATE [Suspect]
     Indication: ARTHRITIS
     Dosage: 75 MG WEEKLY PO
     Route: 048
     Dates: start: 19970201, end: 19980210
  2. SALBUTAMOL [Concomitant]
  3. BECLOMETHASONE DIPROPIONATE [Concomitant]

REACTIONS (2)
  - ASTHMA [None]
  - LOCALISED INFECTION [None]
